APPROVED DRUG PRODUCT: FULVESTRANT
Active Ingredient: FULVESTRANT
Strength: 250MG/5ML (50MG/ML)
Dosage Form/Route: SOLUTION;INTRAMUSCULAR
Application: N210326 | Product #001 | TE Code: AO
Applicant: FRESENIUS KABI USA LLC
Approved: May 20, 2019 | RLD: No | RS: No | Type: RX

PATENTS:
Patent 9271990 | Expires: May 17, 2034
Patent 9833459 | Expires: Feb 14, 2034
Patent 10188663 | Expires: Feb 14, 2034